FAERS Safety Report 4378952-8 (Version None)
Quarter: 2004Q2

REPORT INFORMATION
  Report Type: 
  Country: None (occurrence: None)
  Receive Date: 20040610
  Receipt Date: 20040525
  Transmission Date: 20050107
  Serious: Yes (Other)
  Sender: FDA-Public Use
  Company Number: 2004217215GB

PATIENT
  Age: 75 Year
  Sex: Male

DRUGS (2)
  1. CAMPTOSAR [Suspect]
     Indication: COLORECTAL CANCER METASTATIC
     Dosage: 125 MG/M2, WEEKLY, IV
     Route: 042
     Dates: start: 20040402
  2. FLUOROURACIL [Suspect]
     Indication: COLORECTAL CANCER METASTATIC
     Dosage: IV BOLUS
     Route: 040
     Dates: start: 20040402

REACTIONS (1)
  - PNEUMONITIS [None]
